FAERS Safety Report 11427503 (Version 2)
Quarter: 2016Q3

REPORT INFORMATION
  Report Type: Spontaneous
  Country: US (occurrence: US)
  Receive Date: 20150827
  Receipt Date: 20160830
  Transmission Date: 20161109
  Serious: No
  Sender: FDA-Public Use
  Company Number: US-SA-2015SA034065

PATIENT
  Age: 32 Year
  Sex: Female

DRUGS (4)
  1. PRENATAL VITAMINS [Concomitant]
     Active Substance: VITAMINS
     Indication: PREGNANCY
     Dates: start: 2014, end: 2014
  2. TEGRETOL [Concomitant]
     Active Substance: CARBAMAZEPINE
     Indication: NEURALGIA
  3. FABRAZYME [Suspect]
     Active Substance: AGALSIDASE BETA
     Route: 042
  4. VITAMIN D [Concomitant]
     Active Substance: CHOLECALCIFEROL

REACTIONS (1)
  - Exposure during pregnancy [Unknown]

NARRATIVE: CASE EVENT DATE: 201312
